FAERS Safety Report 6742338-9 (Version None)
Quarter: 2010Q2

REPORT INFORMATION
  Report Type: 
  Country: None (occurrence: None)
  Receive Date: 20100526
  Receipt Date: 20100514
  Transmission Date: 20101027
  Serious: Yes (Death)
  Sender: FDA-Public Use
  Company Number: DE-SHIRE-SPV1-2010-00954

PATIENT
  Sex: Male
  Weight: 3.77 kg

DRUGS (2)
  1. VELAGLUCERASE ALFA [Suspect]
     Indication: GAUCHER'S DISEASE
     Dosage: 90 UNK, 1X/WEEK
     Route: 042
     Dates: start: 20100401, end: 20100428
  2. PREDNISOLONE [Concomitant]
     Indication: HEPATOSPLENOMEGALY
     Dates: start: 20100101

REACTIONS (1)
  - GAUCHER'S DISEASE [None]
